FAERS Safety Report 7481205-2 (Version None)
Quarter: 2011Q2

REPORT INFORMATION
  Report Type: 
  Country: None (occurrence: None)
  Receive Date: 20110516
  Receipt Date: 20110502
  Transmission Date: 20111010
  Serious: Yes (Hospitalization, Other)
  Sender: FDA-Public Use
  Company Number: US-ELI_LILLY_AND_COMPANY-US201101001790

PATIENT
  Sex: Female

DRUGS (10)
  1. FORTEO [Suspect]
     Indication: OSTEOPOROSIS
     Dosage: 20 UG, QD
     Route: 065
     Dates: start: 20090501
  2. FORTEO [Suspect]
     Dosage: 20 UG, QD
     Route: 065
     Dates: end: 20110301
  3. LISINOPRIL [Concomitant]
  4. FERROUS SULFATE TAB [Concomitant]
  5. COMBIGAN [Concomitant]
  6. PREVACID [Concomitant]
  7. AZOPT [Concomitant]
  8. PHENERGAN HCL [Concomitant]
  9. TRAVATAN [Concomitant]
  10. VICODIN [Concomitant]

REACTIONS (10)
  - GAIT DISTURBANCE [None]
  - LIMB INJURY [None]
  - FATIGUE [None]
  - HAEMORRHAGE [None]
  - PAIN IN EXTREMITY [None]
  - GASTRIC ULCER HAEMORRHAGE [None]
  - JOINT INJURY [None]
  - COMPRESSION FRACTURE [None]
  - ECZEMA [None]
  - ALOPECIA [None]
